FAERS Safety Report 8477421-3 (Version None)
Quarter: 2012Q2

REPORT INFORMATION
  Report Type: 
  Country: None (occurrence: None)
  Receive Date: 20120629
  Receipt Date: 20120627
  Transmission Date: 20120825
  Serious: No
  Sender: FDA-Public Use
  Company Number: US-TEVA-345632USA

PATIENT
  Sex: Female
  Weight: 60.382 kg

DRUGS (7)
  1. FISH OIL [Concomitant]
  2. NUVIGIL [Suspect]
     Indication: HYPERSOMNIA
     Dosage: 250 MILLIGRAM;
     Route: 048
     Dates: start: 20120626, end: 20120627
  3. METHIMAZOLE [Concomitant]
     Indication: THYROID DISORDER
     Route: 048
  4. CALCIUM [Concomitant]
  5. PREMIER THYROID COMPLEX [Concomitant]
  6. ERGOCALCIFEROL [Concomitant]
  7. LACTOBACILLUS REUTERI [Concomitant]

REACTIONS (4)
  - OROPHARYNGEAL PAIN [None]
  - FEELING OF BODY TEMPERATURE CHANGE [None]
  - PHARYNGEAL OEDEMA [None]
  - INSOMNIA [None]
